FAERS Safety Report 14095999 (Version 1)
Quarter: 2017Q4

REPORT INFORMATION
  Report Type: Report from Study
  Country: ES (occurrence: ES)
  Receive Date: 20171017
  Receipt Date: 20171017
  Transmission Date: 20180321
  Serious: Yes (Death, Other)
  Sender: FDA-Public Use
  Company Number: ES-ROCHE-1936583

PATIENT

DRUGS (6)
  1. PEG-INTERFERON ALFA 2A [Suspect]
     Active Substance: PEGINTERFERON ALFA-2A
     Indication: HEPATITIS C
     Route: 065
  2. MYCOPHENOLATE MOFETIL. [Suspect]
     Active Substance: MYCOPHENOLATE MOFETIL
     Indication: PROPHYLAXIS AGAINST TRANSPLANT REJECTION
     Route: 065
  3. CYCLOSPORINE. [Suspect]
     Active Substance: CYCLOSPORINE
     Indication: PROPHYLAXIS AGAINST TRANSPLANT REJECTION
     Route: 065
  4. RIBAVIRIN. [Suspect]
     Active Substance: RIBAVIRIN
     Indication: HEPATITIS C
     Dosage: 800-1200 MG/DAY, WITH AT LEAST 11 MG/KG/DAY.
     Route: 065
  5. TACROLIMUS. [Suspect]
     Active Substance: TACROLIMUS
     Indication: PROPHYLAXIS AGAINST TRANSPLANT REJECTION
     Route: 065
  6. PEGINTERFERON ALFA-2B [Suspect]
     Active Substance: PEGINTERFERON ALFA-2B
     Indication: HEPATITIS C
     Route: 065

REACTIONS (17)
  - Thrombocytopenia [Unknown]
  - Liver abscess [Unknown]
  - Weight decreased [Unknown]
  - Urinary tract infection [Unknown]
  - Hypothyroidism [Unknown]
  - Skin infection [Unknown]
  - Hepatic artery thrombosis [Fatal]
  - Neutropenia [Unknown]
  - Gastroenteritis [Unknown]
  - Pneumonia [Unknown]
  - Hyperthyroidism [Unknown]
  - Cholangitis [Unknown]
  - Upper respiratory tract infection [Unknown]
  - Anaemia [Unknown]
  - Depressive symptom [Unknown]
  - Bacteraemia [Fatal]
  - Asthenia [Unknown]
